FAERS Safety Report 9214575 (Version 1)
Quarter: 2013Q2

REPORT INFORMATION
  Report Type: Spontaneous
  Country: GB (occurrence: GB)
  Receive Date: 20130405
  Receipt Date: 20130405
  Transmission Date: 20140414
  Serious: Yes (Life-Threatening, Hospitalization)
  Sender: FDA-Public Use
  Company Number: GB-ROCHE-1209484

PATIENT
  Age: 79 Year
  Sex: Female
  Weight: 77.6 kg

DRUGS (14)
  1. DOXAZOSIN [Concomitant]
  2. FELODIPINE [Concomitant]
  3. FOLIC ACID [Concomitant]
  4. ISOSORBIDE MONONITRATE [Concomitant]
  5. LISINOPRIL [Concomitant]
  6. METHOTREXATE [Concomitant]
  7. NICORANDIL [Concomitant]
  8. PARACETAMOL [Concomitant]
  9. TOLTERODINE [Concomitant]
  10. TRAMADOL [Concomitant]
  11. MABTHERA [Suspect]
     Indication: RHEUMATOID ARTHRITIS
     Route: 042
     Dates: start: 20130228
  12. ASPIRIN [Concomitant]
  13. ATORVASTATIN [Concomitant]
  14. BISOPROLOL [Concomitant]

REACTIONS (2)
  - Angina pectoris [Unknown]
  - Acute myocardial infarction [Recovered/Resolved with Sequelae]
